FAERS Safety Report 14868309 (Version 1)
Quarter: 2018Q2

REPORT INFORMATION
  Report Type: Spontaneous
  Country: US (occurrence: US)
  Receive Date: 20180509
  Receipt Date: 20180509
  Transmission Date: 20180711
  Serious: No
  Sender: FDA-Public Use
  Company Number: PHHY2018US001013

PATIENT
  Sex: Female

DRUGS (1)
  1. ICAPS LO [Suspect]
     Active Substance: MINERALS\VITAMINS
     Indication: PRODUCT USED FOR UNKNOWN INDICATION
     Dosage: UNK
     Route: 065
     Dates: start: 20180423, end: 20180430

REACTIONS (6)
  - Abdominal pain upper [Recovered/Resolved]
  - Product quality issue [Unknown]
  - Tremor [Recovered/Resolved]
  - Foreign body in respiratory tract [Recovered/Resolved]
  - Asthenia [Recovered/Resolved]
  - Product odour abnormal [Unknown]

NARRATIVE: CASE EVENT DATE: 20180430
